FAERS Safety Report 18201862 (Version 1)
Quarter: 2020Q3

REPORT INFORMATION
  Report Type: Report from Study
  Country: CL (occurrence: CL)
  Receive Date: 20200827
  Receipt Date: 20200827
  Transmission Date: 20201103
  Serious: Yes (Death)
  Sender: FDA-Public Use
  Company Number: CL-BIOGEN-2020BI00915789

PATIENT
  Age: 6 Year
  Sex: Male

DRUGS (1)
  1. SPINRAZA [Suspect]
     Active Substance: NUSINERSEN
     Indication: SPINAL MUSCULAR ATROPHY
     Route: 037
     Dates: start: 20200323, end: 20200514

REACTIONS (2)
  - Cardio-respiratory arrest [Fatal]
  - Influenza [Unknown]

NARRATIVE: CASE EVENT DATE: 20200809
